FAERS Safety Report 7800737-8 (Version None)
Quarter: 2011Q4

REPORT INFORMATION
  Report Type: 
  Country: None (occurrence: None)
  Receive Date: 20111006
  Receipt Date: 20110923
  Transmission Date: 20120403
  Serious: Yes (Other)
  Sender: FDA-Public Use
  Company Number: PHHY2011IT85109

PATIENT
  Age: 30 Year
  Sex: Female

DRUGS (7)
  1. EVEROLIMUS [Suspect]
     Dosage: 0.75 MG, BID
  2. EVEROLIMUS [Suspect]
     Dosage: 0.75 MG, BID
  3. CYCLOSPORINE [Suspect]
     Dosage: 125 MG, BID
  4. CYCLOSPORINE [Suspect]
     Indication: RENAL TRANSPLANT
     Dosage: 100 MG, BID
  5. STEROIDS NOS [Concomitant]
     Dosage: 5 MG, UNK
  6. EVEROLIMUS [Suspect]
     Indication: RENAL TRANSPLANT
     Dosage: UNK
  7. STEROIDS NOS [Concomitant]
     Dosage: 5 MG, UNK

REACTIONS (8)
  - TUBULOINTERSTITIAL NEPHRITIS [None]
  - PROTEINURIA [None]
  - BLOOD CREATININE INCREASED [None]
  - HYPERTENSION [None]
  - MATERNAL EXPOSURE DURING PREGNANCY [None]
  - PREMATURE LABOUR [None]
  - KIDNEY TRANSPLANT REJECTION [None]
  - RENAL IMPAIRMENT [None]
